FAERS Safety Report 4337508-3 (Version None)
Quarter: 2004Q2

REPORT INFORMATION
  Report Type: 
  Country: None (occurrence: None)
  Receive Date: 20040413
  Receipt Date: 20030313
  Transmission Date: 20050107
  Serious: Yes (Life-Threatening, Hospitalization)
  Sender: FDA-Public Use
  Company Number: DE-GLAXOSMITHKLINE-A0400220A

PATIENT
  Age: 52 Year
  Sex: Male

DRUGS (10)
  1. NAVELBINE [Suspect]
     Dosage: 60MG PER DAY
     Route: 042
     Dates: start: 20021204
  2. BROMUC 600 [Concomitant]
  3. PANTOPRAZOLE SODIUM [Concomitant]
  4. MORPHINE SULFATE [Concomitant]
  5. NOVALGIN [Concomitant]
  6. SAROTEN [Concomitant]
  7. PARACODIN [Concomitant]
  8. MARCUMAR [Concomitant]
  9. FORTECORTIN [Concomitant]
  10. AREDIA [Concomitant]

REACTIONS (3)
  - ACUTE PULMONARY OEDEMA [None]
  - LYMPHANGIOSIS CARCINOMATOSA [None]
  - NEOPLASM PROGRESSION [None]
